FAERS Safety Report 9231477 (Version 1)
Quarter: 2013Q2

REPORT INFORMATION
  Report Type: Spontaneous
  Country: US (occurrence: US)
  Receive Date: 20130415
  Receipt Date: 20130415
  Transmission Date: 20140414
  Serious: Yes (Other)
  Sender: FDA-Public Use
  Company Number: US-GLAXOSMITHKLINE-A1019623A

PATIENT
  Age: 79 Year
  Sex: Male

DRUGS (8)
  1. SORIATANE [Suspect]
     Indication: SKIN CANCER
     Dosage: 25MG PER DAY
     Route: 048
     Dates: start: 2007
  2. METFORMIN [Concomitant]
  3. GLIPIZIDE [Concomitant]
  4. LOSARTAN [Concomitant]
  5. AZILECT [Concomitant]
  6. AMANTADINE [Concomitant]
  7. VITAMIN D [Concomitant]
  8. PROBIOTIC [Concomitant]

REACTIONS (9)
  - Parkinson^s disease [Unknown]
  - Red blood cell sedimentation rate increased [Unknown]
  - Decreased appetite [Unknown]
  - Weight decreased [Unknown]
  - Rhinorrhoea [Unknown]
  - Neuropathy peripheral [Recovered/Resolved]
  - Gait disturbance [Recovered/Resolved]
  - Ill-defined disorder [Recovered/Resolved]
  - Therapeutic response unexpected [Unknown]
